FAERS Safety Report 7374726-4 (Version None)
Quarter: 2011Q1

REPORT INFORMATION
  Report Type: 
  Country: None (occurrence: None)
  Receive Date: 20110325
  Receipt Date: 20100917
  Transmission Date: 20110831
  Serious: No
  Sender: FDA-Public Use
  Company Number: US-MYLANLABS-2010S1016302

PATIENT
  Age: 87 Year
  Sex: Female
  Weight: 58.97 kg

DRUGS (1)
  1. FENTANYL-100 [Suspect]
     Indication: ARTHRITIS
     Dosage: CHANGED Q72H
     Route: 062
     Dates: start: 20080101

REACTIONS (2)
  - APPLICATION SITE DISCOLOURATION [None]
  - APPLICATION SITE PRURITUS [None]
